FAERS Safety Report 8010689-6 (Version None)
Quarter: 2011Q4

REPORT INFORMATION
  Report Type: 
  Country: None (occurrence: None)
  Receive Date: 20111228
  Receipt Date: 20111222
  Transmission Date: 20120403
  Serious: Yes (Other)
  Sender: FDA-Public Use
  Company Number: FR-BAYER-2011-123144

PATIENT
  Age: 86 Year
  Sex: Male

DRUGS (6)
  1. LOSARTAN POTASSIUM [Concomitant]
  2. MOXIFLOXACIN HCL [Suspect]
     Indication: BRONCHITIS
     Dosage: UNK
     Dates: start: 20111221
  3. PLAVIX [Concomitant]
  4. AIROMIR [Concomitant]
  5. FLECAINIDE ACETATE [Concomitant]
  6. CARBOCISTEINE [Concomitant]

REACTIONS (5)
  - MENTAL DISORDER [None]
  - APHASIA [None]
  - MALAISE [None]
  - CONVULSION [None]
  - PALLOR [None]
